FAERS Safety Report 13088516 (Version 8)
Quarter: 2020Q4

REPORT INFORMATION
  Report Type: Spontaneous
  Country: US (occurrence: US)
  Receive Date: 20170105
  Receipt Date: 20201006
  Transmission Date: 20210113
  Serious: Yes (Hospitalization, Congenital Anomaly, Other)
  Sender: FDA-Public Use
  Company Number: PHEH2016US034172

PATIENT
  Sex: Female

DRUGS (2)
  1. ONDANSETRON HYDROCHLORIDE. [Suspect]
     Active Substance: ONDANSETRON HYDROCHLORIDE
     Indication: FOETAL EXPOSURE DURING PREGNANCY
     Dosage: MOTHER^S DOSE: 04 MG, AS NEEDED (PRN)
     Route: 064
  2. ZOFRAN [Suspect]
     Active Substance: ONDANSETRON HYDROCHLORIDE
     Indication: FOETAL EXPOSURE DURING PREGNANCY
     Dosage: MOTHER DOSE: 4 MG, PRN
     Route: 064

REACTIONS (50)
  - Fallot^s tetralogy [Unknown]
  - Right ventricle outflow tract obstruction [Unknown]
  - Dyspnoea [Unknown]
  - Right ventricular dilatation [Unknown]
  - Cyanosis neonatal [Unknown]
  - Pulmonary oedema [Unknown]
  - Pleural effusion [Unknown]
  - Cardiomegaly [Unknown]
  - Skin discolouration [Unknown]
  - Patent ductus arteriosus [Unknown]
  - Lung hyperinflation [Unknown]
  - Haematemesis [Unknown]
  - Injury [Unknown]
  - Weight decrease neonatal [Unknown]
  - Anxiety [Unknown]
  - Abdominal distension [Unknown]
  - Heart disease congenital [Unknown]
  - Left-to-right cardiac shunt [Unknown]
  - Atrial septal defect [Unknown]
  - Pulmonary valve stenosis [Unknown]
  - Sepsis [Unknown]
  - Atelectasis [Unknown]
  - Pyrexia [Unknown]
  - Gastrooesophageal reflux disease [Unknown]
  - Pain of skin [Unknown]
  - Right ventricular hypertrophy [Unknown]
  - Gastritis [Unknown]
  - Adenovirus infection [Unknown]
  - Illness [Unknown]
  - Chromaturia [Unknown]
  - Leukocytosis [Unknown]
  - Hypoglycaemia [Unknown]
  - Rhinorrhoea [Unknown]
  - Congenital pulmonary valve disorder [Unknown]
  - Cardiac dysfunction [Unknown]
  - Acute respiratory failure [Unknown]
  - Dehydration [Unknown]
  - Insomnia [Unknown]
  - Ventricular septal defect [Unknown]
  - Cardiac murmur [Unknown]
  - Respiratory distress [Unknown]
  - Foetal exposure during pregnancy [Unknown]
  - Cough [Unknown]
  - Polyuria [Unknown]
  - Haemoptysis [Unknown]
  - Vascular malformation [Unknown]
  - Neonatal hypoxia [Unknown]
  - Pulmonary valve incompetence [Unknown]
  - Acidosis [Unknown]
  - Decreased appetite [Unknown]
